FAERS Safety Report 20906730 (Version 3)
Quarter: 2023Q4

REPORT INFORMATION
  Report Type: Report from Study
  Country: US (occurrence: US)
  Receive Date: 20220602
  Receipt Date: 20231019
  Transmission Date: 20240109
  Serious: Yes (Other)
  Sender: FDA-Public Use
  Company Number: US-TAKEDA-US202026290

PATIENT
  Sex: Female

DRUGS (2)
  1. HUMAN IMMUNOGLOBULIN G [Suspect]
     Active Substance: HUMAN IMMUNOGLOBULIN G
     Indication: Immunodeficiency common variable
     Dosage: UNK
     Route: 065
  2. GAMMAGARD LIQUID [Suspect]
     Active Substance: HUMAN IMMUNOGLOBULIN G
     Indication: Immunodeficiency common variable
     Dosage: UNK
     Route: 058

REACTIONS (8)
  - Diverticulitis [Unknown]
  - Immunoglobulins decreased [Unknown]
  - Sinus disorder [Unknown]
  - Fibromyalgia [Unknown]
  - Infusion site erythema [Unknown]
  - Fatigue [Unknown]
  - Rash [Unknown]
  - Incorrect dose administered [Unknown]
